FAERS Safety Report 6349475-1 (Version None)
Quarter: 2009Q3

REPORT INFORMATION
  Report Type: 
  Country: None (occurrence: None)
  Receive Date: 20090911
  Receipt Date: 20090818
  Transmission Date: 20100115
  Serious: Yes (Hospitalization)
  Sender: FDA-Public Use
  Company Number: IT-ABBOTT-09P-083-0596351-00

PATIENT
  Sex: Female

DRUGS (6)
  1. ERITROCINA BUSTINE DA [Suspect]
     Indication: PYODERMA
     Route: 048
     Dates: start: 20090805, end: 20090807
  2. MEDIPO [Concomitant]
     Indication: HYPERCHOLESTEROLAEMIA
     Dates: start: 20050101, end: 20090807
  3. ENAPREN [Concomitant]
     Indication: DRUG USE FOR UNKNOWN INDICATION
  4. ASPIRIN [Concomitant]
     Indication: DRUG USE FOR UNKNOWN INDICATION
  5. TAPAZOLE [Concomitant]
     Indication: DRUG USE FOR UNKNOWN INDICATION
  6. AMLODIPINE [Concomitant]
     Indication: DRUG USE FOR UNKNOWN INDICATION

REACTIONS (2)
  - LIVER DISORDER [None]
  - RHABDOMYOLYSIS [None]
